FAERS Safety Report 22822458 (Version 2)
Quarter: 2023Q4

REPORT INFORMATION
  Report Type: Spontaneous
  Country: GB (occurrence: GB)
  Receive Date: 20230815
  Receipt Date: 20231127
  Transmission Date: 20240109
  Serious: Yes (Disabling)
  Sender: FDA-Public Use
  Company Number: None

PATIENT
  Age: 34 Year
  Sex: Female

DRUGS (15)
  1. BUPIVACAINE [Suspect]
     Active Substance: BUPIVACAINE
     Dosage: (ADDITIONAL INFORMATION ON DRUG: HEAVY BUPIVACAINE)
     Route: 065
     Dates: start: 20230613
  2. LEVOBUPIVACAINE [Suspect]
     Active Substance: LEVOBUPIVACAINE
     Indication: Breakthrough pain
     Dosage: 3 MILLILITRE
     Route: 008
     Dates: start: 20230612
  3. LEVOBUPIVACAINE [Suspect]
     Active Substance: LEVOBUPIVACAINE
     Dosage: 10 MILLILITRE
     Route: 065
     Dates: start: 20230612
  4. LEVOBUPIVACAINE [Suspect]
     Active Substance: LEVOBUPIVACAINE
     Dosage: 98 MILLILITRE, (DOSAGE TEXT: VIA PATIENT-CONTROLLED EPIDURAL ANALGESIA (PCEA) PUMP OVER 14 HOURS), (
     Route: 008
     Dates: start: 20230613
  5. LEVOBUPIVACAINE [Suspect]
     Active Substance: LEVOBUPIVACAINE
     Dosage: 10 MILLILITRE
     Route: 065
     Dates: start: 20230613
  6. LEVOBUPIVACAINE [Suspect]
     Active Substance: LEVOBUPIVACAINE
     Dosage: 7 MILLILITRE, (ADDITIONAL INFORMATION ON DRUG: 7ML LEVOBUP 0.1% + FENT 2MCG/ML (BAG MIX))
     Route: 065
     Dates: start: 20230612
  7. FENTANYL [Suspect]
     Active Substance: FENTANYL\FENTANYL CITRATE
     Dosage: (ADDITIONAL INFORMATION ON DRUG: 7ML LEVOBUP 0.1% + FENT 2MCG/ML (BAG MIX))
     Route: 065
     Dates: start: 20230612
  8. FENTANYL [Suspect]
     Active Substance: FENTANYL\FENTANYL CITRATE
     Dosage: 98 MILLILITRE, (DOSAGE TEXT: VIA PATIENT-CONTROLLED EPIDURAL ANALGESIA (PCEA) PUMP OVER 14 HOURS), (
     Route: 008
     Dates: start: 20230613
  9. DIAMORPHINE [Suspect]
     Active Substance: DIAMORPHINE
     Dosage: (ADDITIONAL INFORMATION ON DRUG: PRE-FILLED SYRINGE)
     Route: 065
  10. AMOXICILLIN\CLAVULANATE POTASSIUM [Concomitant]
     Active Substance: AMOXICILLIN\CLAVULANATE POTASSIUM
     Dosage: UNK
     Route: 065
  11. METFORMIN [Concomitant]
     Active Substance: METFORMIN HYDROCHLORIDE
     Indication: Gestational diabetes
     Dosage: UNK
     Route: 065
  12. DEXTROSE [Concomitant]
     Active Substance: DEXTROSE\DEXTROSE MONOHYDRATE
     Indication: Blood glucose decreased
     Dosage: (ADDITIONAL INFORMATION ON DRUG: GLUCOGEL)
     Route: 065
     Dates: start: 20230613
  13. ACETAMINOPHEN [Concomitant]
     Active Substance: ACETAMINOPHEN
     Indication: Pyrexia
     Dosage: 1 GRAMS
     Route: 065
     Dates: start: 20230613
  14. CEFUROXIME [Concomitant]
     Active Substance: CEFUROXIME
     Dosage: UNK
     Route: 065
  15. METRONIDAZOLE [Concomitant]
     Active Substance: METRONIDAZOLE
     Dosage: UNK
     Route: 065

REACTIONS (6)
  - Sensory loss [Recovering/Resolving]
  - Constipation [Unknown]
  - Muscular weakness [Recovering/Resolving]
  - Motor dysfunction [Recovering/Resolving]
  - Arachnoiditis [Unknown]
  - Nerve injury [Unknown]
